FAERS Safety Report 18618877 (Version 6)
Quarter: 2021Q2

REPORT INFORMATION
  Report Type: Report from Study
  Country: US (occurrence: US)
  Receive Date: 20201215
  Receipt Date: 20210521
  Transmission Date: 20210717
  Serious: Yes (Hospitalization, Other)
  Sender: FDA-Public Use
  Company Number: NVSC2020US326920

PATIENT
  Age: 80 Year
  Sex: Male

DRUGS (3)
  1. ENTRESTO [Suspect]
     Active Substance: SACUBITRIL\VALSARTAN
     Indication: CARDIAC FAILURE
     Dosage: 50 MG, BID (24/26MG)
     Route: 048
     Dates: start: 20201005
  2. SPIRONOLACTONE. [Suspect]
     Active Substance: SPIRONOLACTONE
     Indication: LIVER FUNCTION TEST INCREASED
  3. SPIRONOLACTONE. [Suspect]
     Active Substance: SPIRONOLACTONE
     Indication: RENAL IMPAIRMENT
     Dosage: 0.5 DF (25 MG), QD
     Route: 065
     Dates: start: 202011, end: 202101

REACTIONS (12)
  - Limb injury [Unknown]
  - Rash [Unknown]
  - Blood pressure decreased [Unknown]
  - Fall [Unknown]
  - Blood test abnormal [Unknown]
  - Stress fracture [Unknown]
  - Renal impairment [Unknown]
  - Peripheral swelling [Unknown]
  - Product use in unapproved indication [Unknown]
  - Prostatic specific antigen increased [Unknown]
  - Liver function test increased [Unknown]
  - Sepsis [Unknown]

NARRATIVE: CASE EVENT DATE: 202011
